FAERS Safety Report 4292212-5 (Version None)
Quarter: 2004Q1

REPORT INFORMATION
  Report Type: 
  Country: None (occurrence: None)
  Receive Date: 20040126
  Receipt Date: 20031015
  Transmission Date: 20041129
  Serious: No
  Sender: FDA-Public Use
  Company Number: USA030843593

PATIENT
  Age: 80 Year
  Sex: Female
  Weight: 98 kg

DRUGS (4)
  1. FORTEO [Suspect]
     Indication: BONE DISORDER
     Dosage: 20 UG/DAY
     Dates: start: 20030731
  2. FORTEO [Suspect]
     Indication: OSTEOPOROSIS
     Dosage: 20 UG/DAY
     Dates: start: 20030731
  3. WYTENSIN (GUANABENZ ACETATE) [Concomitant]
  4. DIOVAN [Concomitant]

REACTIONS (2)
  - CONTUSION [None]
  - HYPOTENSION [None]
